FAERS Safety Report 5865749-2 (Version None)
Quarter: 2008Q3

REPORT INFORMATION
  Report Type: 
  Country: None (occurrence: None)
  Receive Date: 20080829
  Receipt Date: 20080826
  Transmission Date: 20090109
  Serious: Yes (Other)
  Sender: FDA-Public Use
  Company Number: PHEH2008US07525

PATIENT
  Sex: Female

DRUGS (3)
  1. VIVELLE-DOT [Suspect]
     Dosage: UNK
  2. VIVELLE-DOT [Suspect]
     Dosage: NO TREATMENT
  3. VIVELLE-DOT [Suspect]
     Dosage: UNK

REACTIONS (2)
  - GENITAL HAEMORRHAGE [None]
  - HAEMORRHAGE [None]
